FAERS Safety Report 6902878-6 (Version None)
Quarter: 2010Q3

REPORT INFORMATION
  Report Type: 
  Country: None (occurrence: None)
  Receive Date: 20100803
  Receipt Date: 20080827
  Transmission Date: 20110219
  Serious: Yes (Other)
  Sender: FDA-Public Use
  Company Number: US-PFIZER INC-2008059451

PATIENT
  Sex: Female
  Weight: 129.7 kg

DRUGS (7)
  1. LYRICA [Suspect]
     Indication: FIBROMYALGIA
     Route: 048
     Dates: start: 20080619, end: 20080711
  2. CYMBALTA [Concomitant]
     Indication: FIBROMYALGIA
  3. DICLOFENAC [Concomitant]
  4. VYTORIN [Concomitant]
  5. SYNTHROID [Concomitant]
  6. CLONAZEPAM [Concomitant]
  7. HYDROCODONE BITARTRATE [Concomitant]

REACTIONS (4)
  - CELLULITIS [None]
  - OEDEMA PERIPHERAL [None]
  - SWELLING [None]
  - WEIGHT FLUCTUATION [None]
